FAERS Safety Report 9187702 (Version 1)
Quarter: 2013Q1

REPORT INFORMATION
  Report Type: Spontaneous
  Country: US (occurrence: US)
  Receive Date: 20130325
  Receipt Date: 20130325
  Transmission Date: 20140127
  Serious: No
  Sender: FDA-Public Use
  Company Number: US-MYLANLABS-2012S1003422

PATIENT
  Age: 47 Year
  Sex: Male

DRUGS (7)
  1. FENTANYL TRANSDERMAL SYSTEM [Suspect]
     Indication: BACK PAIN
     Dosage: CHANGES EVERY 72 HOURS
     Route: 062
     Dates: start: 201112
  2. GABAPENTIN [Concomitant]
  3. CYMBALTA [Concomitant]
  4. TEMAZEPAM [Concomitant]
  5. NUCYNTA [Concomitant]
  6. LISINOPRIL [Concomitant]
  7. OMEPRAZOLE [Concomitant]

REACTIONS (3)
  - Application site erythema [Not Recovered/Not Resolved]
  - Application site pain [Not Recovered/Not Resolved]
  - Application site swelling [Not Recovered/Not Resolved]
